FAERS Safety Report 20320775 (Version 2)
Quarter: 2022Q1

REPORT INFORMATION
  Report Type: Report from Study
  Country: EG (occurrence: EG)
  Receive Date: 20220111
  Receipt Date: 20220119
  Transmission Date: 20220424
  Serious: Yes (Other)
  Sender: FDA-Public Use
  Company Number: EG-NOVARTISPH-NVSC2021EG141224

PATIENT
  Age: 38 Year
  Sex: Female

DRUGS (7)
  1. GILENYA [Suspect]
     Active Substance: FINGOLIMOD HYDROCHLORIDE
     Indication: Multiple sclerosis
     Dosage: 0.5 MG, QD
     Route: 048
     Dates: start: 202012, end: 20210601
  2. GILENYA [Suspect]
     Active Substance: FINGOLIMOD HYDROCHLORIDE
     Dosage: 0.5 MG, QD
     Route: 048
     Dates: start: 20210619
  3. CIDOPHAGE [Concomitant]
     Indication: Diabetes mellitus
     Dosage: 1 DF, QD, 1000, STOPPED TAKING THESE MEDICATIONS REGULARLY BUT TOOK THEM WHEN REQUIRED, ACCORDING TO
     Route: 048
     Dates: start: 2018, end: 202006
  4. GLUCOPHAGE [Concomitant]
     Active Substance: METFORMIN HYDROCHLORIDE
     Indication: Product used for unknown indication
     Dosage: 1 DF, QD, STOPPED TAKING THESE MEDICATIONS REGULARLY BUT TOOK THEM WHEN REQUIRED, ACCORDING TO WHAT
     Route: 065
     Dates: end: 202006
  5. AMARYL [Concomitant]
     Active Substance: GLIMEPIRIDE
     Indication: Diabetes mellitus
     Dosage: 4 MG, QD
     Route: 048
     Dates: start: 2018
  6. TEGRETOL [Concomitant]
     Active Substance: CARBAMAZEPINE
     Indication: Hypoaesthesia
     Dosage: 1 DOSAGE FORM, BID (ONE TAB EVERY MORNING AND EVENING)
     Route: 065
  7. TEGRETOL [Concomitant]
     Active Substance: CARBAMAZEPINE
     Dosage: 1 DOSAGE FORM, BID (ONE TAB EVERY MORNING AND EVENING)
     Route: 048
     Dates: end: 202112

REACTIONS (13)
  - Multiple sclerosis [Not Recovered/Not Resolved]
  - Hypoaesthesia [Not Recovered/Not Resolved]
  - Tremor [Not Recovered/Not Resolved]
  - Pain [Not Recovered/Not Resolved]
  - Blood glucose fluctuation [Not Recovered/Not Resolved]
  - Blood glucose increased [Not Recovered/Not Resolved]
  - Stress [Not Recovered/Not Resolved]
  - Headache [Not Recovered/Not Resolved]
  - Fatigue [Not Recovered/Not Resolved]
  - Heart rate abnormal [Not Recovered/Not Resolved]
  - Feeling abnormal [Not Recovered/Not Resolved]
  - Alopecia [Not Recovered/Not Resolved]
  - Vision blurred [Recovering/Resolving]

NARRATIVE: CASE EVENT DATE: 20201201
